FAERS Safety Report 14670370 (Version 2)
Quarter: 2018Q1

REPORT INFORMATION
  Report Type: Spontaneous
  Country: US (occurrence: US)
  Receive Date: 20180322
  Receipt Date: 20180330
  Transmission Date: 20180509
  Serious: Yes (Hospitalization)
  Sender: FDA-Public Use
  Company Number: US-TEVA-2018-US-873082

PATIENT
  Age: 39 Year
  Sex: Female

DRUGS (5)
  1. OXYCODONE HYDROCHLORIDE. [Suspect]
     Active Substance: OXYCODONE HYDROCHLORIDE
     Indication: BACK PAIN
     Dosage: INITIAL PRESCRIBED DOSE NOT STATED
     Route: 065
  2. DIPHENHYDRAMINE. [Suspect]
     Active Substance: DIPHENHYDRAMINE
     Dosage: COUPLE OF PILLS (UNKNOWN DOSAGE)
     Route: 065
  3. ALPRAZOLAM. [Interacting]
     Active Substance: ALPRAZOLAM
     Indication: ANXIETY
     Dosage: SINGLE DOSAGE OF 1 MG
     Route: 065
  4. OXYCODONE HYDROCHLORIDE. [Interacting]
     Active Substance: OXYCODONE HYDROCHLORIDE
     Indication: BACK PAIN
     Dosage: 120 MG (TAKING DOUBLE HER PRESCRIBED DOSE OF OXYCODONE)
     Route: 065
  5. LORAZEPAM. [Interacting]
     Active Substance: LORAZEPAM
     Indication: ANXIETY
     Dosage: SINGLE DOSAGE OF 0.5 MG
     Route: 065

REACTIONS (8)
  - Somnolence [Recovered/Resolved]
  - Compartment syndrome [Recovered/Resolved]
  - Loss of consciousness [Recovered/Resolved]
  - Lethargy [Recovered/Resolved]
  - Drug interaction [Recovered/Resolved]
  - Food interaction [Recovered/Resolved]
  - Symptom masked [Recovered/Resolved]
  - Overdose [Recovered/Resolved]
